FAERS Safety Report 22222924 (Version 1)
Quarter: 2023Q2

REPORT INFORMATION
  Report Type: Spontaneous
  Country: JP (occurrence: JP)
  Receive Date: 20230418
  Receipt Date: 20230418
  Transmission Date: 20230722
  Serious: Yes (Hospitalization)
  Sender: FDA-Public Use
  Company Number: JP-Teva Takeda Yakuhin-2023-JP-000883J

PATIENT
  Sex: Male

DRUGS (6)
  1. LANSOPRAZOLE [Suspect]
     Active Substance: LANSOPRAZOLE
     Indication: Prophylaxis
     Route: 065
     Dates: start: 202212
  2. LANSOPRAZOLE [Suspect]
     Active Substance: LANSOPRAZOLE
     Indication: Product used for unknown indication
     Route: 048
     Dates: start: 20230225
  3. MIYA-BM [Concomitant]
     Active Substance: CLOSTRIDIUM BUTYRICUM SPORES STRAIN M-55
     Indication: Product used for unknown indication
     Route: 065
  4. FURSULTIAMINE [Concomitant]
     Active Substance: FURSULTIAMINE
     Indication: Product used for unknown indication
     Route: 065
  5. HERBAL NOS [Concomitant]
     Active Substance: HERBALS
     Indication: Product used for unknown indication
     Route: 065
  6. SODIUM CHLORIDE [Concomitant]
     Active Substance: SODIUM CHLORIDE
     Indication: Product used for unknown indication
     Route: 065

REACTIONS (5)
  - Pneumonia aspiration [Unknown]
  - Faeces soft [Unknown]
  - Diarrhoea [Unknown]
  - Constipation [Unknown]
  - Product use in unapproved indication [Unknown]

NARRATIVE: CASE EVENT DATE: 20230225
